FAERS Safety Report 21593707 (Version 2)
Quarter: 2023Q2

REPORT INFORMATION
  Report Type: Spontaneous
  Country: JP (occurrence: JP)
  Receive Date: 20221115
  Receipt Date: 20230515
  Transmission Date: 20230722
  Serious: Yes (Death, Other)
  Sender: FDA-Public Use
  Company Number: JP-BRISTOL-MYERS SQUIBB COMPANY-BMS-2021-088802

PATIENT
  Age: 78 Year
  Sex: Female

DRUGS (6)
  1. SPRYCEL [Suspect]
     Active Substance: DASATINIB
     Indication: Chronic myeloid leukaemia
     Dosage: UNKNOWN
     Dates: start: 2017
  2. HYDREA [Suspect]
     Active Substance: HYDROXYUREA
     Indication: White blood cell count increased
  3. WARFARIN [Concomitant]
     Active Substance: WARFARIN
     Indication: Atrial fibrillation
     Route: 048
  4. IMATINIB [Concomitant]
     Active Substance: IMATINIB
     Indication: Chronic myeloid leukaemia
  5. NILOTINIB [Concomitant]
     Active Substance: NILOTINIB
     Indication: Chronic myeloid leukaemia
     Dosage: Q3WK
     Dates: start: 202102, end: 202108
  6. NILOTINIB [Concomitant]
     Active Substance: NILOTINIB
     Dates: start: 201805, end: 202102

REACTIONS (5)
  - Pleural effusion [Recovering/Resolving]
  - Hyponatraemia [Unknown]
  - Oedema [Unknown]
  - Bradycardia [Unknown]
  - Cardiac failure [Fatal]

NARRATIVE: CASE EVENT DATE: 20190801
